FAERS Safety Report 18579897 (Version 1)
Quarter: 2020Q4

REPORT INFORMATION
  Report Type: Spontaneous
  Country: US (occurrence: US)
  Receive Date: 20201204
  Receipt Date: 20201204
  Transmission Date: 20210114
  Serious: No
  Sender: FDA-Public Use
  Company Number: US-SOFGEN PHARMACEUTICALS, LLC-2096694

PATIENT
  Age: 65 Year
  Sex: Female
  Weight: 62.1 kg

DRUGS (3)
  1. ESTROGEN GEL (SINCE 2020-AUGUST-28 AND SHE WAS STILL USING IT BY THE T [Concomitant]
     Dates: start: 20200828
  2. PROGESTERONE. [Suspect]
     Active Substance: PROGESTERONE
     Indication: HORMONE REPLACEMENT THERAPY
     Route: 048
     Dates: start: 20200721, end: 20200904
  3. ESTROGEN PATCH (SINCE 2020-JULY-2020 T0 2020 SEPTEMBER-03) [Concomitant]

REACTIONS (2)
  - Metrorrhagia [Unknown]
  - Premenstrual syndrome [Unknown]

NARRATIVE: CASE EVENT DATE: 20200721
